FAERS Safety Report 4968383-1 (Version None)
Quarter: 2006Q2

REPORT INFORMATION
  Report Type: 
  Country: None (occurrence: None)
  Receive Date: 20060410
  Receipt Date: 20060306
  Transmission Date: 20061013
  Serious: Yes (Other)
  Sender: FDA-Public Use
  Company Number: DE-BOEHRINGER INGELHEIM PHARMACEUTICALS, INC.-2006-DE-01222DE

PATIENT
  Sex: Male
  Weight: 68 kg

DRUGS (5)
  1. ALNA OCAS [Suspect]
     Indication: BENIGN PROSTATIC HYPERPLASIA
     Route: 048
     Dates: start: 20060304
  2. ALNA [Concomitant]
     Indication: BENIGN PROSTATIC HYPERPLASIA
     Route: 048
     Dates: start: 20031210, end: 20060303
  3. BISOPROLOL [Concomitant]
     Indication: HYPERTENSION
     Dosage: 1/2-0-0
     Route: 048
  4. ALLOPURINOL [Concomitant]
     Indication: HYPERURICAEMIA
     Route: 048
  5. MEVINACOR [Concomitant]
     Indication: HYPERCHOLESTEROLAEMIA
     Dosage: 10 MG AS REQIRED
     Route: 048

REACTIONS (4)
  - GENERALISED ERYTHEMA [None]
  - LOCAL SWELLING [None]
  - RASH [None]
  - URTICARIA [None]
